FAERS Safety Report 6031544-7 (Version None)
Quarter: 2008Q4

REPORT INFORMATION
  Report Type: 
  Country: None (occurrence: None)
  Receive Date: 20081222
  Receipt Date: 20081021
  Transmission Date: 20090506
  Serious: No
  Sender: FDA-Public Use
  Company Number: US-WYE-H06523008

PATIENT
  Age: 61 Year
  Sex: Female
  Weight: 54.48 kg

DRUGS (7)
  1. PRISTIQ [Suspect]
     Indication: LIBIDO INCREASED
     Dosage: 50 MG 1X PER 1 DAY, ORAL
     Route: 048
     Dates: start: 20081020, end: 20081021
  2. WELLBUTRIN [Concomitant]
  3. ALTACE [Concomitant]
  4. CADUET (AMLODIPINE BESILATE/ATORVASTATIN CALCIUM) [Concomitant]
  5. LAMICTAL [Concomitant]
  6. SINEMET [Concomitant]
  7. SYNTHROID [Concomitant]

REACTIONS (3)
  - ANOREXIA [None]
  - DIZZINESS [None]
  - FEELING ABNORMAL [None]
